FAERS Safety Report 15821414 (Version 1)
Quarter: 2019Q1

REPORT INFORMATION
  Report Type: Spontaneous
  Country: US (occurrence: US)
  Receive Date: 20190112
  Receipt Date: 20190112
  Transmission Date: 20190417
  Serious: Yes (Other)
  Sender: FDA-Public Use
  Company Number: None

PATIENT
  Age: 40 Year
  Sex: Male
  Weight: 123.75 kg

DRUGS (10)
  1. TRAZODONE [Suspect]
     Active Substance: TRAZODONE HYDROCHLORIDE
     Indication: SLEEP DISORDER
     Dosage: ?          QUANTITY:1 TABLET(S);?
     Route: 048
  2. TRAZODONE [Suspect]
     Active Substance: TRAZODONE HYDROCHLORIDE
     Indication: SCHIZOPHRENIA
     Dosage: ?          QUANTITY:1 TABLET(S);?
     Route: 048
  3. VITAMIN K [Concomitant]
     Active Substance: PHYTONADIONE
  4. IBUPROFEN. [Concomitant]
     Active Substance: IBUPROFEN
  5. DEPAKOTE [Concomitant]
     Active Substance: DIVALPROEX SODIUM
  6. VITAMIN B [Concomitant]
     Active Substance: VITAMIN B
  7. VITAMIN D [Concomitant]
     Active Substance: CHOLECALCIFEROL
  8. INVEGA [Concomitant]
     Active Substance: PALIPERIDONE
  9. VITAMIN A [Concomitant]
     Active Substance: VITAMIN A
  10. VITAMIN C [Concomitant]
     Active Substance: ASCORBIC ACID

REACTIONS (6)
  - Tunnel vision [None]
  - Electrocardiogram QT prolonged [None]
  - Dizziness [None]
  - Drug effect increased [None]
  - Heart rate irregular [None]
  - Nausea [None]

NARRATIVE: CASE EVENT DATE: 20190109
